FAERS Safety Report 26183872 (Version 1)
Quarter: 2025Q4

REPORT INFORMATION
  Report Type: Report from Study
  Country: US (occurrence: US)
  Receive Date: 20251221
  Receipt Date: 20251221
  Transmission Date: 20260117
  Serious: No
  Sender: SANDOZ
  Company Number: US-SANDOZ-SDZ2025US095784

PATIENT
  Sex: Male

DRUGS (1)
  1. OMNITROPE [Suspect]
     Active Substance: SOMATROPIN
     Indication: Hypopituitarism
     Dosage: 3.4 MG, QD (STRENGTH 10/1.5 MG/ML)

REACTIONS (8)
  - Malaise [Unknown]
  - Injection site discomfort [Unknown]
  - Injection site pain [Unknown]
  - Injection site haemorrhage [Unknown]
  - Injection site discharge [Unknown]
  - Injection site swelling [Unknown]
  - Circumstance or information capable of leading to medication error [Unknown]
  - Device use issue [Unknown]
